FAERS Safety Report 18687246 (Version 1)
Quarter: 2020Q4

REPORT INFORMATION
  Report Type: Spontaneous
  Country: US (occurrence: US)
  Receive Date: 20201231
  Receipt Date: 20201231
  Transmission Date: 20210114
  Serious: Yes (Other)
  Sender: FDA-Public Use
  Company Number: US-LUPIN PHARMACEUTICALS INC.-2020-11137

PATIENT
  Age: 15 Year
  Sex: Male

DRUGS (4)
  1. HYDROCORTISONE. [Suspect]
     Active Substance: HYDROCORTISONE
     Indication: ECZEMA
     Dosage: UNK, TOPICAL 2.5%
     Route: 061
  2. TRIAMCINOLONE [Suspect]
     Active Substance: TRIAMCINOLONE
     Indication: RHINITIS ALLERGIC
     Dosage: 220 MICROGRAM, QD, 55MCG TWO SPRAYS TWICE A DAY
     Route: 045
  3. FLUTICASONE. [Suspect]
     Active Substance: FLUTICASONE
     Indication: ASTHMA
     Dosage: 440 MICROGRAM, QD
     Route: 048
  4. FLUTICASONE. [Suspect]
     Active Substance: FLUTICASONE
     Indication: EOSINOPHILIC OESOPHAGITIS
     Dosage: 440 MICROGRAM, QD (SCHEDULED TO RECEIVE FLUTICASONE PROPIONATE 110MCG TWO PUFFS TWICE A DAY (440 MCG
     Route: 061

REACTIONS (1)
  - Adrenal suppression [Unknown]
